FAERS Safety Report 9131150 (Version 1)
Quarter: 2013Q1

REPORT INFORMATION
  Report Type: Report from Study
  Country: US (occurrence: US)
  Receive Date: 20130301
  Receipt Date: 20130301
  Transmission Date: 20140127
  Serious: No
  Sender: FDA-Public Use
  Company Number: US-VERTEX PHARMACEUTICALS INC.-2013-002853

PATIENT
  Age: 56 Year
  Sex: Female

DRUGS (6)
  1. VX-950 (TELAPREVIR) [Suspect]
     Indication: HEPATITIS C
     Dosage: 750 MG, TID
     Route: 048
     Dates: start: 20130107
  2. RIBAVIRIN [Suspect]
     Indication: HEPATITIS C
     Dosage: 200 MG, UNK
     Dates: start: 20130107
  3. PEGASYS [Suspect]
     Indication: HEPATITIS C
     Dosage: UNK
     Dates: start: 20130107
  4. CYMBALTA [Concomitant]
     Dosage: 20 MG, UNK
  5. TRAZODONE [Concomitant]
     Dosage: 100 MG, UNK
  6. VYVANSE [Concomitant]
     Dosage: 20 MG, UNK

REACTIONS (3)
  - Influenza like illness [Unknown]
  - Fatigue [Unknown]
  - Blood potassium decreased [Recovered/Resolved]
